FAERS Safety Report 5402061-X (Version None)
Quarter: 2007Q3

REPORT INFORMATION
  Report Type: 
  Country: None (occurrence: None)
  Receive Date: 20070727
  Receipt Date: 20070717
  Transmission Date: 20080115
  Serious: Yes (Death, Hospitalization)
  Sender: FDA-Public Use
  Company Number: 39215

PATIENT
  Age: 21 Year
  Sex: Female

DRUGS (2)
  1. METHOTREXATE INJ USP 50MG/2ML - BEDFORD LABS, INC. [Suspect]
     Indication: CHORIOCARCINOMA
     Dosage: 1 MG/IM/T X 1
  2. METHOTREXATE INJ USP 50MG/2ML - BEDFORD LABS, INC. [Suspect]
     Indication: METASTASIS
     Dosage: 1 MG/IM/T X 1

REACTIONS (10)
  - ANAEMIA [None]
  - DRUG TOXICITY [None]
  - HYPOXIA [None]
  - LUNG INFILTRATION [None]
  - PULMONARY HAEMORRHAGE [None]
  - RESPIRATORY ACIDOSIS [None]
  - RESPIRATORY FAILURE [None]
  - TACHYCARDIA [None]
  - TUMOUR LYSIS SYNDROME [None]
  - VAGINAL HAEMORRHAGE [None]
